FAERS Safety Report 8715607 (Version 2)
Quarter: 2013Q1

REPORT INFORMATION
  Report Type: Spontaneous
  Country: US (occurrence: None)
  Receive Date: 20120725
  Receipt Date: 20130222
  Transmission Date: 20140127
  Serious: Yes (Other)
  Sender: FDA-Public Use
  Company Number: ACO_31147_2012

PATIENT
  Age: 54 Year
  Sex: Female

DRUGS (5)
  1. AMPYRA [Suspect]
     Indication: GAIT DISTURBANCE
     Dosage: 10 MG, BID, ORAL
     Route: 048
     Dates: start: 201205, end: 201207
  2. VALIUM /00017001/ (DIAZEPAM) [Concomitant]
  3. COPAXONE (GLATIRAMER ACETATE) [Concomitant]
  4. LITHIUM (LITHIUM) UNKNOWN [Concomitant]
  5. EFFEXOR (VENLAFAXINE HYDROCHLORIDE) UNKNOWN [Concomitant]

REACTIONS (5)
  - Tremor [None]
  - Convulsion [None]
  - Abdominal discomfort [None]
  - Hypoaesthesia [None]
  - Dizziness [None]
